FAERS Safety Report 25809973 (Version 1)
Quarter: 2025Q3

REPORT INFORMATION
  Report Type: Report from Study
  Country: US (occurrence: US)
  Receive Date: 20250917
  Receipt Date: 20250917
  Transmission Date: 20251020
  Serious: Yes (Other)
  Sender: JOHNSON AND JOHNSON
  Company Number: US-JNJFOC-20250911418

PATIENT
  Age: 45 Year
  Sex: Male

DRUGS (1)
  1. SPRAVATO [Suspect]
     Active Substance: ESKETAMINE
     Indication: Depression
     Dosage: ^84 MG, 4 TOTAL DOSES^
     Route: 045
     Dates: start: 20250827, end: 20250903

REACTIONS (4)
  - Hallucination [Unknown]
  - Discomfort [Unknown]
  - Throat irritation [Unknown]
  - Illusion [Unknown]

NARRATIVE: CASE EVENT DATE: 20250101
